FAERS Safety Report 5868978-7 (Version None)
Quarter: 2008Q3

REPORT INFORMATION
  Report Type: 
  Country: None (occurrence: None)
  Receive Date: 20080903
  Receipt Date: 20080828
  Transmission Date: 20090109
  Serious: Yes (Death, Life-Threatening)
  Sender: FDA-Public Use
  Company Number: DE-AVENTIS-200812132DE

PATIENT
  Age: 55 Year
  Sex: Female
  Weight: 80 kg

DRUGS (8)
  1. TAXOTERE [Suspect]
     Route: 042
     Dates: start: 20080702, end: 20070702
  2. LASIX [Concomitant]
     Dosage: DOSE: 1-1-0
     Route: 048
     Dates: start: 20080628
  3. ISOPTIN [Concomitant]
     Dosage: DOSE: 1-1-140
     Route: 048
     Dates: start: 20080701
  4. CONCOR                             /00802602/ [Concomitant]
     Dosage: DOSE: 1-0-1
     Route: 048
  5. FORTECORTIN                        /00016001/ [Concomitant]
     Dosage: DOSE: 1-0-1
     Route: 048
     Dates: start: 20080630
  6. ULTRALAN                           /00101901/ [Concomitant]
     Dosage: DOSE: 1-0-0
     Route: 048
     Dates: end: 20080702
  7. AREDIA                             /00729902/ [Concomitant]
     Route: 042
     Dates: start: 20080701, end: 20080701
  8. MARCUMAR [Concomitant]
     Indication: DRUG USE FOR UNKNOWN INDICATION

REACTIONS (2)
  - CARDIO-RESPIRATORY ARREST [None]
  - PULMONARY OEDEMA [None]
